FAERS Safety Report 7737170-3 (Version None)
Quarter: 2011Q3

REPORT INFORMATION
  Report Type: 
  Country: None (occurrence: None)
  Receive Date: 20110908
  Receipt Date: 20110829
  Transmission Date: 20111222
  Serious: Yes (Other)
  Sender: FDA-Public Use
  Company Number: JP-ROCHE-800157

PATIENT
  Sex: Male

DRUGS (9)
  1. TEPRENONE [Concomitant]
     Route: 048
  2. CANDESARTAN CILEXETIL [Concomitant]
     Route: 048
  3. AMLODIPINE [Concomitant]
     Route: 048
  4. PEGINTERFERON ALFA-2A [Suspect]
     Route: 058
     Dates: start: 20100428, end: 20100721
  5. RIBAVIRIN [Suspect]
     Route: 048
     Dates: start: 20100428, end: 20100721
  6. URSO 250 [Concomitant]
     Route: 048
  7. FAMOTIDINE [Concomitant]
     Route: 048
  8. PEGINTERFERON ALFA-2A [Suspect]
     Indication: HEPATITIS C
     Dosage: DOSAGE IS UNCERTAIN.
     Route: 058
     Dates: start: 20091224, end: 20100210
  9. RIBAVIRIN [Suspect]
     Indication: HEPATITIS C
     Route: 048

REACTIONS (5)
  - NEUTROPHIL COUNT DECREASED [None]
  - HAEMOGLOBIN DECREASED [None]
  - PLATELET COUNT DECREASED [None]
  - ECZEMA [None]
  - PYREXIA [None]
